FAERS Safety Report 15483348 (Version 1)
Quarter: 2018Q4

REPORT INFORMATION
  Report Type: Spontaneous
  Country: US (occurrence: US)
  Receive Date: 20181010
  Receipt Date: 20181010
  Transmission Date: 20190205
  Serious: No
  Sender: FDA-Public Use
  Company Number: US-TARO-2017TAR01007

PATIENT
  Age: 93 Year
  Sex: Female
  Weight: 49.43 kg

DRUGS (4)
  1. LOZOL [Concomitant]
     Active Substance: INDAPAMIDE
     Dosage: 1.25 MG, 1X/DAY
  2. MAGNESIUM CITRATE. [Concomitant]
     Active Substance: MAGNESIUM CITRATE
  3. THERALOGIX CRANBERRY [Concomitant]
  4. MUPIROCIN OINTMENT USP 2% [Suspect]
     Active Substance: MUPIROCIN
     Indication: RHINITIS
     Dosage: ^VERY LITTLE AMOUNT,^ 3X/DAY
     Route: 061
     Dates: start: 20171107, end: 201711

REACTIONS (1)
  - Hypersensitivity [Not Recovered/Not Resolved]

NARRATIVE: CASE EVENT DATE: 20171108
